FAERS Safety Report 6362345-8 (Version None)
Quarter: 2009Q3

REPORT INFORMATION
  Report Type: 
  Country: None (occurrence: None)
  Receive Date: 20090918
  Receipt Date: 20090710
  Transmission Date: 20100115
  Serious: No
  Sender: FDA-Public Use
  Company Number: PR-ABBOTT-09P-131-0584765-00

PATIENT
  Sex: Female
  Weight: 49.94 kg

DRUGS (3)
  1. HUMIRA [Suspect]
     Indication: RHEUMATOID ARTHRITIS
     Route: 058
     Dates: start: 20090626
  2. SYNTHROID [Concomitant]
     Indication: THYROIDECTOMY
     Dosage: 1 - 75 MICROGRAM TABLET DAILY
     Route: 048
  3. CELEBREX [Concomitant]
     Indication: PAIN
     Route: 048

REACTIONS (4)
  - INJECTION SITE ERYTHEMA [None]
  - INJECTION SITE HAEMATOMA [None]
  - INJECTION SITE PRURITUS [None]
  - INJECTION SITE REACTION [None]
